FAERS Safety Report 4369927-3 (Version None)
Quarter: 2004Q2

REPORT INFORMATION
  Report Type: 
  Country: None (occurrence: None)
  Receive Date: 20040603
  Receipt Date: 20040528
  Transmission Date: 20050107
  Serious: Yes (Death)
  Sender: FDA-Public Use
  Company Number: US-BRISTOL-MYERS SQUIBB COMPANY-12600722

PATIENT

DRUGS (2)
  1. WARFARIN SODIUM [Suspect]
  2. PLAVIX [Suspect]

REACTIONS (1)
  - DEATH [None]
